FAERS Safety Report 5098833-4 (Version None)
Quarter: 2006Q3

REPORT INFORMATION
  Report Type: 
  Country: None (occurrence: None)
  Receive Date: 20060907
  Receipt Date: 20060711
  Transmission Date: 20061208
  Serious: Yes (Hospitalization)
  Sender: FDA-Public Use
  Company Number: US-AMGEN-US185778

PATIENT
  Sex: Female

DRUGS (5)
  1. NEULASTA [Suspect]
     Indication: CHEMOTHERAPY
     Route: 065
     Dates: start: 20060620
  2. ADRIAMYCIN [Concomitant]
     Route: 065
     Dates: start: 20060619
  3. CYTOXAN [Concomitant]
     Route: 065
     Dates: start: 20060619
  4. LISINOPRIL [Concomitant]
     Dates: end: 20060625
  5. DARVOCET [Concomitant]
     Dates: end: 20060625

REACTIONS (2)
  - HYPERSENSITIVITY [None]
  - RASH ERYTHEMATOUS [None]
